FAERS Safety Report 5709106-8 (Version None)
Quarter: 2008Q2

REPORT INFORMATION
  Report Type: 
  Country: None (occurrence: None)
  Receive Date: 20080416
  Receipt Date: 20080416
  Transmission Date: 20081010
  Serious: Yes (Other)
  Sender: FDA-Public Use
  Company Number: None

PATIENT
  Age: 51 Year
  Sex: Female
  Weight: 91.6266 kg

DRUGS (6)
  1. CELEBREX [Suspect]
     Indication: ARTHRITIS
     Dosage: ONE TABLET DAILY PO
     Route: 048
     Dates: start: 20071222, end: 20080207
  2. CELEBREX [Suspect]
     Indication: INTERVERTEBRAL DISC PROTRUSION
     Dosage: ONE TABLET DAILY PO
     Route: 048
     Dates: start: 20071222, end: 20080207
  3. BENADRYL [Concomitant]
  4. AMBIEN [Concomitant]
  5. MULTIPLE VITAMIN [Concomitant]
  6. FISH OIL [Concomitant]

REACTIONS (2)
  - PALPITATIONS [None]
  - VENTRICULAR EXTRASYSTOLES [None]
